FAERS Safety Report 24912603 (Version 4)
Quarter: 2025Q2

REPORT INFORMATION
  Report Type: Spontaneous
  Country: US (occurrence: US)
  Receive Date: 20250131
  Receipt Date: 20250513
  Transmission Date: 20250716
  Serious: Yes (Other)
  Sender: NOVARTIS
  Company Number: US-002147023-NVSC2025US014357

PATIENT
  Sex: Female

DRUGS (5)
  1. SANDOSTATIN LAR DEPOT [Suspect]
     Active Substance: OCTREOTIDE ACETATE
     Indication: Neoplasm malignant
     Dosage: 30 MG, QMO (INJECTION)
     Route: 065
  2. SANDOSTATIN LAR DEPOT [Suspect]
     Active Substance: OCTREOTIDE ACETATE
  3. SANDOSTATIN LAR DEPOT [Suspect]
     Active Substance: OCTREOTIDE ACETATE
  4. CAPECITABINE [Suspect]
     Active Substance: CAPECITABINE
     Indication: Neoplasm malignant
     Route: 065
  5. CAPSAICIN [Concomitant]
     Active Substance: CAPSAICIN
     Indication: Product used for unknown indication
     Route: 065

REACTIONS (15)
  - Metastases to central nervous system [Unknown]
  - Metastases to breast [Unknown]
  - Second primary malignancy [Unknown]
  - Carcinoid tumour of the gastrointestinal tract [Unknown]
  - Gastrointestinal carcinoma [Unknown]
  - Stomatitis [Unknown]
  - Eye disorder [Unknown]
  - Diarrhoea [Unknown]
  - Erythema [Unknown]
  - Ill-defined disorder [Unknown]
  - Contusion [Unknown]
  - Phlebitis [Unknown]
  - Product physical issue [Unknown]
  - Dizziness [Unknown]
  - Balance disorder [Unknown]
